FAERS Safety Report 10256607 (Version 2)
Quarter: 2014Q3

REPORT INFORMATION
  Report Type: Spontaneous
  Country: US (occurrence: US)
  Receive Date: 20140624
  Receipt Date: 20140721
  Transmission Date: 20150326
  Serious: No
  Sender: FDA-Public Use
  Company Number: US-009507513-1406USA010170

PATIENT
  Age: 54 Year
  Sex: Male
  Weight: 66.21 kg

DRUGS (3)
  1. REBETOL [Suspect]
     Active Substance: RIBAVIRIN
     Indication: HEPATITIS C
     Dosage: TOTAL DALIY DOSAGE: 1000 MG
     Route: 048
     Dates: start: 20140613
  2. PEGINTRON [Suspect]
     Active Substance: PEGINTERFERON ALFA-2B
     Indication: HEPATITIS C
     Dosage: REDIPEN, 0.4 ML, WEEKLY, INJACTABLE
     Route: 058
     Dates: start: 20140613
  3. SOVALDI [Concomitant]
     Active Substance: SOFOSBUVIR
     Indication: HEPATITIS C
     Dosage: TOTAL DAILY DOSE: 400 MG
     Route: 048
     Dates: start: 20140613

REACTIONS (4)
  - Wrong technique in drug usage process [Unknown]
  - Erythema [Recovering/Resolving]
  - Accidental exposure to product [Unknown]
  - Injection site erythema [Unknown]

NARRATIVE: CASE EVENT DATE: 20140613
